FAERS Safety Report 9153501 (Version 2)
Quarter: 2013Q3

REPORT INFORMATION
  Report Type: Spontaneous
  Country: US (occurrence: US)
  Receive Date: 20130311
  Receipt Date: 20130726
  Transmission Date: 20140515
  Serious: Yes (Death)
  Sender: FDA-Public Use
  Company Number: US-BAYER-2013-027521

PATIENT
  Age: 20 Year
  Sex: Female
  Weight: 95.24 kg

DRUGS (1)
  1. YASMIN [Suspect]
     Dosage: UNK
     Dates: start: 20101126, end: 20110220

REACTIONS (3)
  - Pulmonary embolism [Fatal]
  - Injury [Fatal]
  - Pain [Fatal]
